FAERS Safety Report 7669969-6 (Version None)
Quarter: 2011Q3

REPORT INFORMATION
  Report Type: 
  Country: None (occurrence: None)
  Receive Date: 20110808
  Receipt Date: 20110801
  Transmission Date: 20111222
  Serious: Yes (Hospitalization)
  Sender: FDA-Public Use
  Company Number: GXKR2007GB07123

PATIENT
  Age: 19 Year
  Sex: Female

DRUGS (1)
  1. PHENOXYMETHYL PENICILLIN [Suspect]
     Indication: UPPER RESPIRATORY TRACT INFECTION
     Route: 065

REACTIONS (11)
  - TOXIC EPIDERMAL NECROLYSIS [None]
  - BLISTER [None]
  - SKIN EROSION [None]
  - MALAISE [None]
  - MUCOSAL EROSION [None]
  - LIP PAIN [None]
  - ERYTHEMA [None]
  - EYE PAIN [None]
  - PYREXIA [None]
  - VULVOVAGINAL DISCOMFORT [None]
  - RASH PUSTULAR [None]
